FAERS Safety Report 21756737 (Version 2)
Quarter: 2023Q1

REPORT INFORMATION
  Report Type: Spontaneous
  Country: US (occurrence: None)
  Receive Date: 20221220
  Receipt Date: 20230127
  Transmission Date: 20230418
  Serious: No
  Sender: FDA-Public Use
  Company Number: 2022A404332

PATIENT

DRUGS (1)
  1. EVUSHELD [Suspect]
     Active Substance: CILGAVIMAB\TIXAGEVIMAB
     Dosage: 300.0MG UNKNOWN
     Route: 030

REACTIONS (2)
  - Wrong technique in product usage process [Unknown]
  - Product preparation issue [Unknown]

NARRATIVE: CASE EVENT DATE: 20221208
